FAERS Safety Report 4648683-5 (Version None)
Quarter: 2005Q2

REPORT INFORMATION
  Report Type: 
  Country: None (occurrence: None)
  Receive Date: 20050429
  Receipt Date: 20050419
  Transmission Date: 20051028
  Serious: Yes (Hospitalization)
  Sender: FDA-Public Use
  Company Number: PHHO2005US06287

PATIENT
  Age: 57 Year
  Sex: Male
  Weight: 72 kg

DRUGS (3)
  1. LONAFARNIB [Suspect]
     Indication: GLIOMA
     Dosage: 200 MG, BID
     Route: 048
     Dates: start: 20050329, end: 20050404
  2. TEMOZOLOMIDE [Concomitant]
     Indication: GLIOMA
     Dosage: UNK, UNK
     Dates: start: 20050330, end: 20050403
  3. CARBAMAZEPINE [Suspect]

REACTIONS (6)
  - AMNESIA [None]
  - DEPRESSED LEVEL OF CONSCIOUSNESS [None]
  - DRUG INTERACTION [None]
  - DRUG LEVEL ABOVE THERAPEUTIC [None]
  - NEUROLOGICAL SYMPTOM [None]
  - SOMNOLENCE [None]
